FAERS Safety Report 14110815 (Version 2)
Quarter: 2017Q4

REPORT INFORMATION
  Report Type: Report from Study
  Country: None (occurrence: CO)
  Receive Date: 20171020
  Receipt Date: 20171110
  Transmission Date: 20180321
  Serious: Yes (Hospitalization)
  Sender: FDA-Public Use
  Company Number: CO-ABBVIE-17K-036-2135407-00

PATIENT
  Age: 61 Year
  Sex: Female

DRUGS (1)
  1. HUMIRA [Suspect]
     Active Substance: ADALIMUMAB
     Indication: RHEUMATOID ARTHRITIS
     Route: 058
     Dates: start: 20091112, end: 20170926

REACTIONS (4)
  - Gait disturbance [Recovering/Resolving]
  - Vomiting [Recovering/Resolving]
  - Muscle abscess [Recovering/Resolving]
  - Salmonellosis [Recovering/Resolving]

NARRATIVE: CASE EVENT DATE: 20170927
